FAERS Safety Report 7462337-1 (Version None)
Quarter: 2011Q2

REPORT INFORMATION
  Report Type: 
  Country: None (occurrence: None)
  Receive Date: 20110506
  Receipt Date: 20110502
  Transmission Date: 20111010
  Serious: Yes (Hospitalization)
  Sender: FDA-Public Use
  Company Number: FR-PFIZER INC-2011093448

PATIENT
  Age: 65 Year
  Sex: Female

DRUGS (19)
  1. LOVENOX [Concomitant]
     Dosage: 1 DF, 1X/DAY
     Route: 058
  2. TRANXENE [Concomitant]
     Dosage: 10 MG, 3X/DAY
     Route: 048
  3. AMARYL [Suspect]
     Indication: DIABETES MELLITUS
     Dosage: 4 MG, 1X/DAY
     Route: 048
     Dates: start: 20101014
  4. COVERSYL [Concomitant]
     Dosage: 5 MG, 1X/DAY
     Route: 048
  5. DECTANCYL [Concomitant]
     Dosage: 0.5 MG, 2X/DAY
     Route: 048
     Dates: start: 20101019, end: 20101021
  6. SEROPLEX [Concomitant]
     Indication: DEPRESSION
     Dosage: 20 MG, 1X/DAY
     Route: 048
  7. ACUPAN [Concomitant]
     Indication: PAIN
     Dosage: 20 MG, 6X/DAY AS NEEDED
     Route: 058
  8. MEPRONIZINE [Concomitant]
     Dosage: 1 DF, 1X/DAY
     Route: 048
  9. LEVOTHYROX [Concomitant]
     Dosage: 125 UG, 1X/DAY
     Route: 048
  10. ACETAMINOPHEN [Concomitant]
     Dosage: 500 MG, 6X/DAY
     Route: 048
  11. CLINDAMYCIN HCL [Suspect]
     Indication: DIABETIC FOOT
     Dosage: 300 MG, 3X/DAY
     Route: 048
     Dates: start: 20101014, end: 20101021
  12. PYOSTACINE [Concomitant]
     Indication: DIABETIC FOOT
     Dosage: UNK
     Route: 048
     Dates: start: 20101012, end: 20101014
  13. TRAMADOL HCL [Suspect]
     Dosage: 100 MG, 2X/DAY
     Route: 048
     Dates: start: 20101019
  14. ELISOR [Concomitant]
     Dosage: 20 MG, 1X/DAY
     Route: 048
  15. BRISTOPEN [Concomitant]
     Indication: DIABETIC FOOT
     Dosage: UNK
     Dates: start: 20101008, end: 20101011
  16. METFORMIN HCL [Suspect]
     Indication: DIABETES MELLITUS
     Dosage: 1 DF, 3X/DAY
     Route: 048
     Dates: start: 20101014
  17. CIPROFLOXACIN [Suspect]
     Indication: DIABETIC FOOT
     Dosage: 500 MG, 2X/DAY
     Route: 048
     Dates: start: 20101011
  18. NOZINAN [Concomitant]
     Dosage: 25 MG, 1X/DAY
     Route: 048
  19. ULTRA LEVURA [Concomitant]
     Dosage: 200 MG, 1X/DAY
     Route: 048

REACTIONS (1)
  - RASH PAPULAR [None]
